FAERS Safety Report 9278096 (Version 3)
Quarter: 2013Q4

REPORT INFORMATION
  Report Type: Spontaneous
  Country: SK (occurrence: SK)
  Receive Date: 20130508
  Receipt Date: 20131101
  Transmission Date: 20140711
  Serious: Yes (Other)
  Sender: FDA-Public Use
  Company Number: SK-PFIZER INC-2013142086

PATIENT
  Sex: Female

DRUGS (3)
  1. CELEBREX [Suspect]
     Indication: POST-TRAUMATIC PAIN
     Dosage: 200 MG, UNK
  2. TENAXUM [Concomitant]
     Indication: CARDIAC DISORDER
     Dosage: UNK
  3. PREDUCTAL [Concomitant]
     Dosage: UNK

REACTIONS (3)
  - Skin necrosis [Recovered/Resolved]
  - Blood urine present [Unknown]
  - Multiple allergies [Unknown]
